FAERS Safety Report 6917636-6 (Version None)
Quarter: 2010Q3

REPORT INFORMATION
  Report Type: 
  Country: None (occurrence: None)
  Receive Date: 20100810
  Receipt Date: 20100803
  Transmission Date: 20110219
  Serious: Yes (Other)
  Sender: FDA-Public Use
  Company Number: US-SANOFI-AVENTIS-2010SA041564

PATIENT
  Age: 64 Year
  Sex: Male
  Weight: 102.1 kg

DRUGS (7)
  1. MULTAQ [Suspect]
     Indication: ATRIAL FIBRILLATION
     Route: 048
     Dates: start: 20100702, end: 20100719
  2. COUMADIN [Concomitant]
     Indication: ATRIAL FIBRILLATION
     Route: 048
     Dates: start: 20100528
  3. PLAVIX [Concomitant]
     Indication: CORONARY ARTERY DISEASE
     Route: 048
     Dates: start: 20100504
  4. PLAVIX [Concomitant]
     Route: 048
     Dates: start: 20100504
  5. TOPROL-XL [Concomitant]
     Indication: CARDIOMYOPATHY
     Route: 048
     Dates: start: 20100402
  6. LISINOPRIL [Concomitant]
     Indication: CARDIOMYOPATHY
     Route: 048
     Dates: start: 20100402
  7. ZOCOR [Concomitant]
     Route: 048
     Dates: start: 20100426

REACTIONS (2)
  - BLOOD CREATININE INCREASED [None]
  - GLOMERULAR FILTRATION RATE DECREASED [None]
